FAERS Safety Report 14068158 (Version 2)
Quarter: 2017Q4

REPORT INFORMATION
  Report Type: Spontaneous
  Country: PT (occurrence: PT)
  Receive Date: 20171010
  Receipt Date: 20171017
  Transmission Date: 20180321
  Serious: Yes (Hospitalization, Disabling)
  Sender: FDA-Public Use
  Company Number: PT-ASTRAZENECA-2017SF01572

PATIENT
  Sex: Female

DRUGS (1)
  1. BYDUREON [Suspect]
     Active Substance: EXENATIDE
     Indication: TYPE 2 DIABETES MELLITUS
     Route: 065
     Dates: start: 20170925

REACTIONS (3)
  - Gait disturbance [Unknown]
  - Neuropathy peripheral [Unknown]
  - Monoplegia [Unknown]

NARRATIVE: CASE EVENT DATE: 20170925
